FAERS Safety Report 4338441-3 (Version None)
Quarter: 2004Q1

REPORT INFORMATION
  Report Type: 
  Country: None (occurrence: None)
  Receive Date: 20040329
  Receipt Date: 20040212
  Transmission Date: 20041129
  Serious: No
  Sender: FDA-Public Use
  Company Number: USA040259689

PATIENT
  Age: 12 Year
  Sex: 0

DRUGS (1)
  1. STRATTERA [Suspect]

REACTIONS (3)
  - AGITATION [None]
  - NIGHTMARE [None]
  - PSYCHOMOTOR HYPERACTIVITY [None]
